FAERS Safety Report 15990300 (Version 1)
Quarter: 2019Q1

REPORT INFORMATION
  Report Type: Spontaneous
  Country: US (occurrence: US)
  Receive Date: 20190221
  Receipt Date: 20190221
  Transmission Date: 20190418
  Serious: No
  Sender: FDA-Public Use
  Company Number: US-ALLERGAN-1843455US

PATIENT
  Age: 69 Year
  Sex: Female

DRUGS (3)
  1. VITAMINS [Concomitant]
     Active Substance: VITAMINS
     Route: 065
  2. FML [Suspect]
     Active Substance: FLUOROMETHOLONE
     Indication: PTERYGIUM
     Dosage: 2 GTT, UNK
     Route: 047
     Dates: start: 20180903, end: 20180903
  3. SUPPLEMENTS [Concomitant]
     Active Substance: UNSPECIFIED INGREDIENT
     Route: 065

REACTIONS (5)
  - Dry eye [Not Recovered/Not Resolved]
  - Abdominal discomfort [Unknown]
  - Dysgeusia [Unknown]
  - Ocular hyperaemia [Unknown]
  - Abnormal sensation in eye [Recovered/Resolved]

NARRATIVE: CASE EVENT DATE: 20180903
